FAERS Safety Report 17561649 (Version 5)
Quarter: 2021Q4

REPORT INFORMATION
  Report Type: Spontaneous
  Country: US (occurrence: US)
  Receive Date: 20200319
  Receipt Date: 20211224
  Transmission Date: 20220303
  Serious: No
  Sender: FDA-Public Use
  Company Number: US-JNJFOC-20200314106

PATIENT
  Sex: Female

DRUGS (4)
  1. CONCERTA [Suspect]
     Active Substance: METHYLPHENIDATE HYDROCHLORIDE
     Indication: Product used for unknown indication
     Route: 048
     Dates: start: 2018
  2. FLOVENT [Concomitant]
     Active Substance: FLUTICASONE PROPIONATE
     Indication: Asthma
  3. ALBUTEROL [Concomitant]
     Active Substance: ALBUTEROL
     Indication: Asthma
  4. SUDAFED                            /00076302/ [Concomitant]
     Indication: Allergic sinusitis
     Dosage: 24 HOURS

REACTIONS (6)
  - Obsessive-compulsive disorder [Unknown]
  - Attention deficit hyperactivity disorder [Unknown]
  - Hypertension [Unknown]
  - Confusional state [Unknown]
  - Nervousness [Unknown]
  - Disturbance in attention [Unknown]
